FAERS Safety Report 24765598 (Version 1)
Quarter: 2024Q4

REPORT INFORMATION
  Report Type: Spontaneous
  Country: DE (occurrence: DE)
  Receive Date: 20241223
  Receipt Date: 20241223
  Transmission Date: 20250114
  Serious: Yes (Life-Threatening, Hospitalization, Other)
  Sender: Unknown Manufacturer
  Company Number: DE-AstraZeneca-2024A151810

PATIENT
  Age: 32 Year
  Sex: Female
  Weight: 80 kg

DRUGS (5)
  1. IRON [Suspect]
     Active Substance: IRON
     Indication: Product used for unknown indication
     Dosage: UNK UNKNOWN, UNK
     Route: 065
  2. ASTRAZENECA COVID-19 VACCINE [Suspect]
     Active Substance: AZD-1222
     Indication: Product used for unknown indication
     Dosage: UNK UNKNOWN, UNK
     Route: 030
     Dates: start: 20210312
  3. CIPROFLOXACIN [Concomitant]
     Active Substance: CIPROFLOXACIN
     Dosage: UNK
     Route: 065
  4. CEFOTAXIME [Concomitant]
     Active Substance: CEFOTAXIME SODIUM
     Dosage: UNK
     Route: 065
  5. PRADAXA [Concomitant]
     Active Substance: DABIGATRAN ETEXILATE MESYLATE
     Dosage: UNK
     Route: 065

REACTIONS (19)
  - Cerebral haemorrhage [Unknown]
  - Cerebral venous sinus thrombosis [Recovered/Resolved]
  - Sigmoid sinus thrombosis [Unknown]
  - Transverse sinus thrombosis [Unknown]
  - Jugular vein thrombosis [Unknown]
  - Thrombosis with thrombocytopenia syndrome [Unknown]
  - Klebsiella urinary tract infection [Unknown]
  - Tracheobronchitis viral [Unknown]
  - Pneumonia klebsiella [Unknown]
  - Aphasia [Unknown]
  - Cognitive disorder [Unknown]
  - Hemianopia [Unknown]
  - Appendicitis [Unknown]
  - Subarachnoid haemorrhage [Unknown]
  - Speech disorder [Unknown]
  - Hemiparesis [Unknown]
  - Epidural haemorrhage [Unknown]
  - Headache [Unknown]
  - Off label use [Unknown]
